FAERS Safety Report 9217283 (Version 3)
Quarter: 2013Q4

REPORT INFORMATION
  Report Type: Spontaneous
  Country: BR (occurrence: BR)
  Receive Date: 20130408
  Receipt Date: 20131016
  Transmission Date: 20140711
  Serious: Yes (Hospitalization, Other)
  Sender: FDA-Public Use
  Company Number: BR-ASTRAZENECA-2013SE21195

PATIENT
  Age: 71 Year
  Sex: Male
  Weight: 69 kg

DRUGS (6)
  1. CRESTOR [Suspect]
     Indication: BLOOD CHOLESTEROL INCREASED
     Route: 048
     Dates: start: 2012
  2. BRILINTA [Suspect]
     Route: 048
     Dates: start: 201303, end: 2013
  3. NAPRIX [Concomitant]
     Indication: HYPERTENSION
  4. SOMALGIN CARDIO [Concomitant]
     Indication: HYPERTENSION
  5. NOVANLO [Concomitant]
     Dates: start: 201303
  6. ZETIA [Concomitant]
     Dosage: DAILY
     Dates: start: 201303

REACTIONS (3)
  - Hydrocephalus [Recovered/Resolved]
  - Myocardial infarction [Recovered/Resolved]
  - Syphilis [Recovering/Resolving]
